FAERS Safety Report 9134500 (Version 1)
Quarter: 2013Q1

REPORT INFORMATION
  Report Type: Spontaneous
  Country: US (occurrence: US)
  Receive Date: 20130304
  Receipt Date: 20130304
  Transmission Date: 20140127
  Serious: No
  Sender: FDA-Public Use
  Company Number: US-ENDO PHARMACEUTICALS INC.-VALS20110003

PATIENT
  Age: 31 Year
  Sex: Female
  Weight: 64.47 kg

DRUGS (1)
  1. VALSTAR [Suspect]
     Indication: ACCIDENTAL EXPOSURE TO PRODUCT
     Dosage: N/A

REACTIONS (3)
  - Accidental exposure to product [Recovered/Resolved]
  - Burning sensation [Recovered/Resolved]
  - Dysgeusia [Recovered/Resolved]
